FAERS Safety Report 8185215-1 (Version None)
Quarter: 2012Q1

REPORT INFORMATION
  Report Type: 
  Country: None (occurrence: None)
  Receive Date: 20120305
  Receipt Date: 20120227
  Transmission Date: 20120608
  Serious: Yes (Hospitalization)
  Sender: FDA-Public Use
  Company Number: PHHY2012GB016762

PATIENT
  Age: 51 Year
  Sex: Male

DRUGS (2)
  1. METFORMIN HCL [Concomitant]
  2. SIMVASTATIN [Suspect]
     Indication: HYPERCHOLESTEROLAEMIA
     Dosage: UNK

REACTIONS (9)
  - LETHARGY [None]
  - JAUNDICE [None]
  - THROMBOTIC THROMBOCYTOPENIC PURPURA [None]
  - CHROMATURIA [None]
  - THROMBOCYTOPENIA [None]
  - PYREXIA [None]
  - FLANK PAIN [None]
  - MYALGIA [None]
  - MICROANGIOPATHIC HAEMOLYTIC ANAEMIA [None]
